FAERS Safety Report 21808652 (Version 1)
Quarter: 2023Q1

REPORT INFORMATION
  Report Type: Other
  Country: CA (occurrence: CA)
  Receive Date: 20230103
  Receipt Date: 20230103
  Transmission Date: 20230418
  Serious: Yes (Other)
  Sender: FDA-Public Use
  Company Number: CA-APOTEX-2022AP017460

PATIENT

DRUGS (9)
  1. CEFUROXIME [Suspect]
     Active Substance: CEFUROXIME
     Indication: Foetal exposure during pregnancy
     Dosage: UNK
     Route: 064
  2. MOXIFLOXACIN [Suspect]
     Active Substance: MOXIFLOXACIN
     Indication: Foetal exposure during pregnancy
     Dosage: UNK
     Route: 064
  3. EMTRICITABINE\TENOFOVIR [Suspect]
     Active Substance: EMTRICITABINE\TENOFOVIR
     Indication: Foetal exposure during pregnancy
     Dosage: UNK
     Route: 064
  4. SULFAMETHOXAZOLE\TRIMETHOPRIM [Suspect]
     Active Substance: SULFAMETHOXAZOLE\TRIMETHOPRIM
     Indication: Foetal exposure during pregnancy
     Dosage: UNK
     Route: 064
  5. CEFTAZIDIME [Suspect]
     Active Substance: CEFTAZIDIME
     Indication: Foetal exposure during pregnancy
     Dosage: UNK
     Route: 064
  6. CEFTRIAXONE [Suspect]
     Active Substance: CEFTRIAXONE
     Indication: Foetal exposure during pregnancy
     Dosage: UNK
     Route: 064
  7. DOLUTEGRAVIR [Suspect]
     Active Substance: DOLUTEGRAVIR
     Indication: Foetal exposure during pregnancy
     Dosage: UNK
     Route: 064
  8. METHADONE [Suspect]
     Active Substance: METHADONE HYDROCHLORIDE
     Indication: Foetal exposure during pregnancy
     Dosage: UNK
     Route: 064
  9. VANCOMYCIN [Suspect]
     Active Substance: VANCOMYCIN
     Indication: Foetal exposure during pregnancy
     Dosage: UNK
     Route: 064

REACTIONS (2)
  - Foetal growth restriction [Unknown]
  - Foetal exposure during pregnancy [Unknown]
